FAERS Safety Report 24272770 (Version 3)
Quarter: 2024Q3

REPORT INFORMATION
  Report Type: Spontaneous
  Country: JP (occurrence: JP)
  Receive Date: 20240902
  Receipt Date: 20240912
  Transmission Date: 20241017
  Serious: Yes (Hospitalization)
  Sender: SANDOZ
  Company Number: JP-SANDOZ-SDZ2024JP076298

PATIENT
  Sex: Female

DRUGS (4)
  1. RECLAST [Suspect]
     Active Substance: ZOLEDRONIC ACID
     Indication: Product used for unknown indication
     Dosage: 5 MG (IN 1 YEAR)
     Route: 041
     Dates: start: 20240823
  2. RECLAST [Suspect]
     Active Substance: ZOLEDRONIC ACID
     Dosage: ROUTE OF ADMIN (FREE TEXT): INTRAVENOUS DRIP
     Route: 065
     Dates: start: 20240823
  3. TERIPARATIDE ACETATE [Suspect]
     Active Substance: TERIPARATIDE ACETATE
     Dosage: 56.5 UG
     Route: 058
  4. TERIPARATIDE ACETATE [Suspect]
     Active Substance: TERIPARATIDE ACETATE
     Indication: Product used for unknown indication
     Dosage: 8.071 MICROGRAM(S) (56.5 MICROGRAM(S), 1 IN 1 WEEK)
     Route: 058

REACTIONS (10)
  - Tenosynovitis [Unknown]
  - Swelling of eyelid [Unknown]
  - Physical deconditioning [Unknown]
  - Nasopharyngitis [Unknown]
  - Headache [Unknown]
  - Pain [Unknown]
  - Pyrexia [Recovered/Resolved]
  - Arthralgia [Recovered/Resolved]
  - Ocular hyperaemia [Not Recovered/Not Resolved]
  - Uveitis [Not Recovered/Not Resolved]

NARRATIVE: CASE EVENT DATE: 20240801
